FAERS Safety Report 8379679-8 (Version None)
Quarter: 2012Q1

REPORT INFORMATION
  Report Type: 
  Country: None (occurrence: None)
  Receive Date: 20120323
  Receipt Date: 20110624
  Transmission Date: 20120608
  Serious: Yes (Disabling)
  Sender: FDA-Public Use
  Company Number: 163-21880-11032693

PATIENT
  Age: 78 Year
  Sex: Male
  Weight: 77.1115 kg

DRUGS (8)
  1. ACYCLOVIR [Concomitant]
  2. DEXAMETHASONE [Concomitant]
  3. ARANESP [Concomitant]
  4. ZOMETA [Concomitant]
  5. FLOMAX [Concomitant]
  6. JANTOVEN [Concomitant]
  7. VELCADE [Concomitant]
  8. REVLIMID [Suspect]
     Indication: MULTIPLE MYELOMA
     Dosage: 25 MG, DAILY, PO
     Route: 048
     Dates: start: 20070901

REACTIONS (1)
  - MULTIPLE MYELOMA [None]
